FAERS Safety Report 23436362 (Version 1)
Quarter: 2024Q1

REPORT INFORMATION
  Report Type: Spontaneous
  Country: TR (occurrence: TR)
  Receive Date: 20240124
  Receipt Date: 20240124
  Transmission Date: 20240410
  Serious: Yes (Other)
  Sender: FDA-Public Use
  Company Number: TR-SANOFI-01907307

PATIENT
  Sex: Female

DRUGS (1)
  1. HYDROCHLOROTHIAZIDE\IRBESARTAN [Suspect]
     Active Substance: HYDROCHLOROTHIAZIDE\IRBESARTAN
     Dosage: UNK

REACTIONS (1)
  - Syncope [Unknown]
